FAERS Safety Report 15196517 (Version 5)
Quarter: 2018Q4

REPORT INFORMATION
  Report Type: Report from Study
  Country: FR (occurrence: FR)
  Receive Date: 20180725
  Receipt Date: 20181005
  Transmission Date: 20190204
  Serious: No
  Sender: FDA-Public Use
  Company Number: FR-SA-2018SA133793

PATIENT
  Age: 50 Year
  Sex: Male

DRUGS (4)
  1. ELIGLUSTAT. [Suspect]
     Active Substance: ELIGLUSTAT
     Indication: GAUCHER^S DISEASE
     Dosage: 1 DF, QD
     Route: 048
     Dates: start: 20180402, end: 20180417
  2. LEXOMIL [Concomitant]
     Active Substance: BROMAZEPAM
     Indication: ANXIETY
     Dosage: 1.5 MG,UNK
     Route: 048
     Dates: start: 20130429
  3. OMEPRAZOLE. [Concomitant]
     Active Substance: OMEPRAZOLE
     Indication: ABDOMINAL PAIN UPPER
     Dosage: UNK UNK,UNK
     Route: 048
     Dates: start: 2015
  4. GABAPENTIN. [Concomitant]
     Active Substance: GABAPENTIN
     Indication: NEURALGIA
     Dosage: UNK UNK,UNK
     Route: 048
     Dates: start: 2015

REACTIONS (6)
  - Hypotension [Recovered/Resolved]
  - Hot flush [Recovered/Resolved]
  - Muscle atrophy [Recovered/Resolved]
  - Gamma-glutamyltransferase increased [Unknown]
  - Vagus nerve disorder [Recovered/Resolved]
  - Dry mouth [Recovering/Resolving]

NARRATIVE: CASE EVENT DATE: 201804
